FAERS Safety Report 25130955 (Version 3)
Quarter: 2025Q3

REPORT INFORMATION
  Report Type: Report from Study
  Country: BR (occurrence: BR)
  Receive Date: 20250327
  Receipt Date: 20250711
  Transmission Date: 20251021
  Serious: Yes (Other)
  Sender: NOVARTIS
  Company Number: BR-002147023-NVSC2024BR220947

PATIENT
  Age: 53 Year
  Sex: Female

DRUGS (1)
  1. COSENTYX [Suspect]
     Active Substance: SECUKINUMAB
     Indication: Psoriasis
     Route: 065

REACTIONS (12)
  - Leprosy [Unknown]
  - Psoriatic arthropathy [Unknown]
  - Pain [Unknown]
  - Sciatica [Recovering/Resolving]
  - Limb discomfort [Recovering/Resolving]
  - Oedema peripheral [Not Recovered/Not Resolved]
  - Joint swelling [Not Recovered/Not Resolved]
  - Inflammation [Unknown]
  - Chikungunya virus infection [Unknown]
  - Anaemia [Unknown]
  - Hepatic enzyme increased [Unknown]
  - Liver disorder [Unknown]

NARRATIVE: CASE EVENT DATE: 20240501
